FAERS Safety Report 7092683-5 (Version None)
Quarter: 2010Q4

REPORT INFORMATION
  Report Type: 
  Country: None (occurrence: None)
  Receive Date: 20101110
  Receipt Date: 20100415
  Transmission Date: 20110411
  Serious: No
  Sender: FDA-Public Use
  Company Number: US-KINGPHARMUSA00001-K201000445

PATIENT
  Age: 62 Year
  Sex: Male
  Weight: 104.31 kg

DRUGS (5)
  1. FLECTOR [Suspect]
     Indication: BACK PAIN
     Dosage: UNK
     Dates: start: 20100201
  2. CELEBREX [Suspect]
     Dosage: UNK
  3. OXYCONTIN [Concomitant]
  4. OXYCODONE HCL [Concomitant]
  5. MULTI-VITAMIN [Concomitant]

REACTIONS (1)
  - PETECHIAE [None]
